FAERS Safety Report 7927230-6 (Version None)
Quarter: 2011Q4

REPORT INFORMATION
  Report Type: 
  Country: None (occurrence: None)
  Receive Date: 20111118
  Receipt Date: 20111109
  Transmission Date: 20120403
  Serious: Yes (Hospitalization)
  Sender: FDA-Public Use
  Company Number: JP-JNJFOC-20110901796

PATIENT
  Age: 70 Year
  Sex: Female
  Weight: 45 kg

DRUGS (23)
  1. REMICADE [Suspect]
     Route: 042
     Dates: start: 20100428
  2. GLAKAY [Concomitant]
     Indication: OSTEOPOROSIS
     Route: 048
  3. GLAKAY [Concomitant]
     Indication: RHEUMATOID ARTHRITIS
     Route: 048
  4. EVISTA [Concomitant]
     Indication: OSTEOPOROSIS
     Route: 048
  5. ADALIMUMAB [Concomitant]
  6. PREDNISOLONE [Concomitant]
     Route: 048
     Dates: start: 20101006, end: 20101130
  7. SULFAMETHOXAZOLE AND TRIMETHOPRIM [Concomitant]
     Indication: PROPHYLAXIS
     Route: 048
  8. EVISTA [Concomitant]
     Indication: RHEUMATOID ARTHRITIS
     Route: 048
  9. REMICADE [Suspect]
     Route: 042
     Dates: start: 20110223
  10. REMICADE [Suspect]
     Route: 042
     Dates: start: 20100811
  11. REMICADE [Suspect]
     Route: 042
     Dates: start: 20110518
  12. REMICADE [Suspect]
     Route: 042
     Dates: start: 20101006
  13. REMICADE [Suspect]
     Route: 042
     Dates: start: 20110112
  14. METHOTREXATE [Concomitant]
     Route: 048
  15. FOLIC ACID [Concomitant]
     Indication: PROPHYLAXIS
     Route: 048
  16. ELCITONIN [Concomitant]
     Indication: OSTEOPOROSIS
     Route: 030
  17. ETANERCEPT [Concomitant]
  18. REMICADE [Suspect]
     Route: 042
     Dates: start: 20110406
  19. REMICADE [Suspect]
     Route: 042
     Dates: start: 20110629
  20. REMICADE [Suspect]
     Indication: RHEUMATOID ARTHRITIS
     Route: 042
     Dates: start: 20110101
  21. PREDNISOLONE [Concomitant]
     Route: 048
     Dates: start: 20101201
  22. REMICADE [Suspect]
     Route: 042
     Dates: start: 20101201
  23. ELCITONIN [Concomitant]
     Indication: RHEUMATOID ARTHRITIS
     Route: 030

REACTIONS (2)
  - HEMIPLEGIA [None]
  - PUTAMEN HAEMORRHAGE [None]
